FAERS Safety Report 17491549 (Version 1)
Quarter: 2020Q1

REPORT INFORMATION
  Report Type: Report from Study
  Country: NL (occurrence: NL)
  Receive Date: 20200303
  Receipt Date: 20200303
  Transmission Date: 20200409
  Serious: Yes (Other)
  Sender: FDA-Public Use
  Company Number: NL-MYLANLABS-2020M1022762

PATIENT
  Age: 27 Year
  Sex: Female

DRUGS (6)
  1. ISOTRETINOINE [Concomitant]
     Active Substance: ISOTRETINOIN
     Dosage: 30 MILLIGRAM, QD (30MG, 1X/D)
     Route: 048
  2. AZATHIOPRINE. [Suspect]
     Active Substance: AZATHIOPRINE
     Indication: COLITIS ULCERATIVE
     Dosage: UNK
  3. ADALIMUMAB [Concomitant]
     Active Substance: ADALIMUMAB
     Dosage: 40 MILLIGRAM, BIWEEKLY (40MG, 1X/2W)
     Route: 058
     Dates: start: 20161228
  4. SULFASALAZINE. [Concomitant]
     Active Substance: SULFASALAZINE
     Dosage: 1000 MILLIGRAM, BID (1000MG, 2X/D)
     Route: 048
     Dates: start: 20160727
  5. PREDNISON [Concomitant]
     Active Substance: PREDNISONE
     Dosage: 25 MILLIGRAM, QD (25MG, 1X/D)
     Route: 048
     Dates: start: 20161228, end: 20170131
  6. CALCIUM W/COLECALCIFEROL [Concomitant]
     Active Substance: CALCIUM\CHOLECALCIFEROL
     Dosage: 1 DOSAGE FORM, QD (MG, 1X/D)
     Route: 048
     Dates: start: 20161228

REACTIONS (1)
  - Squamous cell carcinoma of skin [Recovered/Resolved]

NARRATIVE: CASE EVENT DATE: 20170120
